FAERS Safety Report 5728699-8 (Version None)
Quarter: 2008Q2

REPORT INFORMATION
  Report Type: 
  Country: None (occurrence: None)
  Receive Date: 20080506
  Receipt Date: 20080428
  Transmission Date: 20081010
  Serious: Yes (Hospitalization, Other)
  Sender: FDA-Public Use
  Company Number: CA-ASTRAZENECA-2008UW08891

PATIENT
  Age: 58 Year
  Sex: Female

DRUGS (24)
  1. CRESTOR [Suspect]
     Indication: HYPERCHOLESTEROLAEMIA
     Route: 048
     Dates: start: 20080404, end: 20080418
  2. CRESTOR [Suspect]
     Route: 048
     Dates: start: 20080421
  3. ATIVAN [Concomitant]
     Indication: ANXIOLYTIC THERAPY
     Route: 048
     Dates: end: 20080418
  4. ATIVAN [Concomitant]
     Route: 048
  5. ALTACE [Concomitant]
     Indication: HYPERTENSION
     Route: 048
     Dates: end: 20080418
  6. ALTACE [Concomitant]
     Route: 048
  7. COUMADIN [Concomitant]
     Indication: ANTICOAGULANT THERAPY
     Route: 048
     Dates: end: 20080418
  8. COUMADIN [Concomitant]
     Route: 048
     Dates: end: 20080418
  9. COUMADIN [Concomitant]
     Route: 048
     Dates: start: 20080421
  10. COUMADIN [Concomitant]
     Route: 048
     Dates: start: 20080421
  11. ASPIRIN [Concomitant]
     Indication: ANTICOAGULANT THERAPY
     Route: 048
     Dates: end: 20080418
  12. ASPIRIN [Concomitant]
     Route: 048
  13. SYNTHROID [Concomitant]
     Indication: THYROID THERAPY
     Route: 048
     Dates: end: 20080418
  14. SYNTHROID [Concomitant]
     Route: 048
  15. METOPROLOL TARTRATE [Concomitant]
     Indication: HYPERTENSION
     Route: 048
     Dates: end: 20080418
  16. METOPROLOL TARTRATE [Concomitant]
     Route: 048
  17. PANTOPRAZOLE SODIUM [Concomitant]
     Indication: REFLUX OESOPHAGITIS
     Route: 048
     Dates: end: 20080418
  18. PANTOPRAZOLE SODIUM [Concomitant]
     Route: 048
  19. NITROGLYCERIN [Concomitant]
     Indication: AGRANULOCYTOSIS
     Route: 055
     Dates: end: 20080418
  20. NITROGLYCERIN [Concomitant]
     Route: 055
  21. VENTOLIN [Concomitant]
     Indication: ANTASTHMATIC DRUG LEVEL THERAPEUTIC
     Route: 055
     Dates: end: 20080418
  22. VENTOLIN [Concomitant]
     Route: 055
  23. FLOVENT [Concomitant]
     Indication: DYSPNOEA
     Route: 055
     Dates: end: 20080418
  24. FLOVENT [Concomitant]
     Route: 055

REACTIONS (3)
  - GINGIVAL BLEEDING [None]
  - HAEMORRHAGE [None]
  - INTERNATIONAL NORMALISED RATIO INCREASED [None]
